FAERS Safety Report 10960165 (Version 1)
Quarter: 2015Q1

REPORT INFORMATION
  Report Type: Spontaneous
  Country: US (occurrence: None)
  Receive Date: 20150326
  Receipt Date: 20150326
  Transmission Date: 20150721
  Serious: Yes (Life-Threatening)
  Sender: FDA-Public Use
  Company Number: None

PATIENT
  Sex: Female
  Weight: 49.9 kg

DRUGS (1)
  1. LEVOTHYROXINE [Suspect]
     Active Substance: LEVOTHYROXINE
     Indication: HYPOTHYROIDISM
     Dosage: PRIOR 2011
     Route: 048
     Dates: start: 2011

REACTIONS (1)
  - Palpitations [None]

NARRATIVE: CASE EVENT DATE: 2011
